FAERS Safety Report 8849770 (Version 1)
Quarter: 2012Q4

REPORT INFORMATION
  Report Type: 
  Country: BR (occurrence: BR)
  Receive Date: 20121019
  Receipt Date: 20121019
  Transmission Date: 20130627
  Serious: Yes (Other)
  Sender: FDA-Public Use
  Company Number: PHHY2012BR093685

PATIENT
  Sex: Female

DRUGS (1)
  1. ACLASTA [Suspect]
     Dosage: 5 mg/100ml, UNK
     Route: 042

REACTIONS (2)
  - Spinal fracture [Not Recovered/Not Resolved]
  - Fracture pain [Not Recovered/Not Resolved]
